FAERS Safety Report 18091706 (Version 2)
Quarter: 2021Q3

REPORT INFORMATION
  Report Type: Spontaneous
  Country: US (occurrence: US)
  Receive Date: 20200730
  Receipt Date: 20210728
  Transmission Date: 20211014
  Serious: No
  Sender: FDA-Public Use
  Company Number: US-SA-2020SA198081

PATIENT
  Age: 12 Year
  Sex: Male

DRUGS (7)
  1. AQUAPHOR [WHITE SOFT PARAFFIN] [Concomitant]
  2. DUPIXENT [Suspect]
     Active Substance: DUPILUMAB
     Indication: DERMATITIS ATOPIC
     Dosage: 200 MG, QOW
     Route: 058
     Dates: start: 20200108
  3. ALBUTEROL SULFATE HFA [Concomitant]
     Active Substance: ALBUTEROL SULFATE
  4. MUPIROCIN. [Concomitant]
     Active Substance: MUPIROCIN
  5. SERTRALINE [Concomitant]
     Active Substance: SERTRALINE HYDROCHLORIDE
  6. BENADRYL ALLERGY [Concomitant]
     Active Substance: DIPHENHYDRAMINE HYDROCHLORIDE
  7. TYLENOL [Concomitant]
     Active Substance: ACETAMINOPHEN

REACTIONS (5)
  - Pruritus [Unknown]
  - Panic attack [Unknown]
  - Product use issue [Unknown]
  - Therapeutic response delayed [Not Recovered/Not Resolved]
  - Fear of injection [Unknown]

NARRATIVE: CASE EVENT DATE: 2020
